FAERS Safety Report 6105262-0 (Version None)
Quarter: 2009Q1

REPORT INFORMATION
  Report Type: 
  Country: None (occurrence: None)
  Receive Date: 20090227
  Receipt Date: 20080625
  Transmission Date: 20090719
  Serious: Yes (Hospitalization)
  Sender: FDA-Public Use
  Company Number: RB-2144-2008

PATIENT
  Age: 65 Year
  Sex: Male

DRUGS (1)
  1. SUBOXONE [Suspect]
     Indication: DRUG DEPENDENCE
     Dosage: 4 MG QID SUBLINGUAL
     Route: 060
     Dates: start: 20080623, end: 20080623

REACTIONS (2)
  - AGITATION [None]
  - DRUG WITHDRAWAL SYNDROME [None]
